FAERS Safety Report 12428204 (Version 1)
Quarter: 2016Q2

REPORT INFORMATION
  Report Type: Spontaneous
  Country: FR (occurrence: FR)
  Receive Date: 20160602
  Receipt Date: 20160602
  Transmission Date: 20160815
  Serious: Yes (Hospitalization)
  Sender: FDA-Public Use
  Company Number: FR-EMD SERONO-8081979

PATIENT
  Age: 27 Year
  Sex: Female

DRUGS (3)
  1. FOSTIMON [Suspect]
     Active Substance: UROFOLLITROPIN
     Indication: PRODUCT USED FOR UNKNOWN INDICATION
     Dosage: 150 IU/ML, POWDER AND SOLVENT FOR INJECTABLE SOLUTION IN PRE-FILLED SYRINGES
     Route: 058
     Dates: start: 20160310, end: 20160319
  2. OVITRELLE [Suspect]
     Active Substance: CHORIOGONADOTROPIN ALFA
     Indication: PRODUCT USED FOR UNKNOWN INDICATION
     Dosage: 250 MICROGRAMS/ 0.5 ML SINGLE DOSE
     Route: 058
     Dates: start: 20160319, end: 20160319
  3. ORGALUTRAN [Suspect]
     Active Substance: GANIRELIX ACETATE
     Indication: PRODUCT USED FOR UNKNOWN INDICATION
     Dosage: 0.25 MG/0.5 ML
     Route: 058
     Dates: start: 20160310, end: 20160319

REACTIONS (2)
  - Ovarian hyperstimulation syndrome [Recovered/Resolved]
  - Pelvic fluid collection [Recovered/Resolved]

NARRATIVE: CASE EVENT DATE: 20160328
